FAERS Safety Report 7584580-3 (Version None)
Quarter: 2011Q2

REPORT INFORMATION
  Report Type: 
  Country: None (occurrence: None)
  Receive Date: 20110630
  Receipt Date: 20110620
  Transmission Date: 20111010
  Serious: Yes (Hospitalization)
  Sender: FDA-Public Use
  Company Number: US-ELI_LILLY_AND_COMPANY-US201012006360

PATIENT
  Sex: Female

DRUGS (3)
  1. FORTEO [Suspect]
     Dosage: 20 UG, QD
  2. FORTEO [Suspect]
     Dosage: 20 UG, QD
  3. FORTEO [Suspect]
     Indication: OSTEOPOROSIS
     Dosage: 20 UG, QD
     Dates: start: 20100617

REACTIONS (7)
  - KNEE ARTHROPLASTY [None]
  - BACK PAIN [None]
  - NASOPHARYNGITIS [None]
  - GAIT DISTURBANCE [None]
  - BACK DISORDER [None]
  - BURSITIS [None]
  - INJECTION SITE HAEMATOMA [None]
